FAERS Safety Report 5036362-4 (Version None)
Quarter: 2006Q2

REPORT INFORMATION
  Report Type: 
  Country: None (occurrence: None)
  Receive Date: 20060601
  Receipt Date: 20060505
  Transmission Date: 20061013
  Serious: No
  Sender: FDA-Public Use
  Company Number: US200604003653

PATIENT
  Age: 60 Year
  Sex: Female

DRUGS (4)
  1. CYMBALTA [Suspect]
     Indication: NEUROPATHY PERIPHERAL
     Dosage: 60 MG
  2. CELEBREX [Concomitant]
  3. PREVACID [Concomitant]
  4. BISOPROLOL W/HYDROCHLOROTHIAZIDE (BISOPROLOL, HYDROCHLOROTHIAZIDE) [Concomitant]

REACTIONS (3)
  - FEELING ABNORMAL [None]
  - LETHARGY [None]
  - NEGATIVE THOUGHTS [None]
